FAERS Safety Report 7997911-7 (Version None)
Quarter: 2011Q4

REPORT INFORMATION
  Report Type: 
  Country: None (occurrence: None)
  Receive Date: 20111221
  Receipt Date: 20111213
  Transmission Date: 20120403
  Serious: Yes (Life-Threatening, Hospitalization, Other)
  Sender: FDA-Public Use
  Company Number: PHHY2011CH110261

PATIENT
  Sex: Male

DRUGS (2)
  1. LIORESAL [Suspect]
  2. RITALIN [Suspect]

REACTIONS (3)
  - GENERAL PHYSICAL HEALTH DETERIORATION [None]
  - COMA [None]
  - DRUG ADMINISTRATION ERROR [None]
